FAERS Safety Report 4909872-5 (Version None)
Quarter: 2006Q1

REPORT INFORMATION
  Report Type: 
  Country: None (occurrence: None)
  Receive Date: 20060213
  Receipt Date: 20060201
  Transmission Date: 20060701
  Serious: Yes (Hospitalization, Other)
  Sender: FDA-Public Use
  Company Number: PHNU2006DE00734

PATIENT
  Sex: Male

DRUGS (10)
  1. SANDIMMUNE [Suspect]
     Indication: HEART TRANSPLANT
     Dosage: 110/0/100MG/DAY
     Route: 048
  2. IMUREK [Concomitant]
  3. DECORTIN [Concomitant]
  4. CARBAMAZEPINE [Concomitant]
  5. CAPTOPRIL [Concomitant]
  6. CAPOZIDE [Concomitant]
  7. TENORMIN [Concomitant]
  8. INEGY [Concomitant]
  9. JODID [Concomitant]
  10. MAGNESIUM [Concomitant]

REACTIONS (5)
  - FALL [None]
  - FEELING HOT [None]
  - LOSS OF CONSCIOUSNESS [None]
  - VENOUS INSUFFICIENCY [None]
  - WHEEZING [None]
